FAERS Safety Report 8386592-9 (Version None)
Quarter: 2012Q2

REPORT INFORMATION
  Report Type: 
  Country: None (occurrence: None)
  Receive Date: 20120525
  Receipt Date: 20111208
  Transmission Date: 20120825
  Serious: No
  Sender: FDA-Public Use
  Company Number: US-GLAXOSMITHKLINE-A0957335A

PATIENT
  Age: 51 Year
  Sex: Male

DRUGS (4)
  1. OTC VITAMINS [Concomitant]
  2. NEXIUM [Concomitant]
  3. VERAMYST [Suspect]
     Indication: INFECTION PROPHYLAXIS
     Dosage: 1SPR TWICE PER DAY
     Route: 045
     Dates: start: 20070101
  4. UNKNOWN MEDICATION [Concomitant]

REACTIONS (1)
  - PRURITUS GENERALISED [None]
